FAERS Safety Report 12823262 (Version 1)
Quarter: 2016Q4

REPORT INFORMATION
  Report Type: Spontaneous
  Country: US (occurrence: US)
  Receive Date: 20161006
  Receipt Date: 20161006
  Transmission Date: 20170207
  Serious: Yes (Other)
  Sender: FDA-Public Use
  Company Number: None

PATIENT
  Age: 49 Year
  Sex: Female
  Weight: 69.75 kg

DRUGS (2)
  1. BUPROPRION HCL XL TABS 150MG [Suspect]
     Active Substance: BUPROPION HYDROCHLORIDE
     Indication: ATTENTION DEFICIT/HYPERACTIVITY DISORDER
     Dosage: OTHER ORAL
     Route: 048
     Dates: start: 20160926, end: 20161003
  2. BUPROPRION HCL XL TABS 150MG [Suspect]
     Active Substance: BUPROPION HYDROCHLORIDE
     Indication: DEPRESSION
     Dosage: OTHER ORAL
     Route: 048
     Dates: start: 20160926, end: 20161003

REACTIONS (4)
  - Mood altered [None]
  - Drug ineffective [None]
  - Asthenia [None]
  - Product substitution issue [None]

NARRATIVE: CASE EVENT DATE: 20160926
